FAERS Safety Report 17693230 (Version 1)
Quarter: 2020Q2

REPORT INFORMATION
  Report Type: Spontaneous
  Country: US (occurrence: US)
  Receive Date: 20200422
  Receipt Date: 20200422
  Transmission Date: 20200714
  Serious: No
  Sender: FDA-Public Use
  Company Number: US-ASTRAZENECA-2020SE45923

PATIENT
  Sex: Female
  Weight: 65.8 kg

DRUGS (1)
  1. PULMICORT FLEXHALER [Suspect]
     Active Substance: BUDESONIDE
     Route: 055
     Dates: start: 20110621

REACTIONS (4)
  - Visual impairment [Unknown]
  - Secretion discharge [Unknown]
  - Eye infection [Not Recovered/Not Resolved]
  - Device defective [Unknown]
